FAERS Safety Report 8400759-2 (Version None)
Quarter: 2012Q2

REPORT INFORMATION
  Report Type: 
  Country: None (occurrence: None)
  Receive Date: 20120531
  Receipt Date: 20120522
  Transmission Date: 20120825
  Serious: Yes (Hospitalization)
  Sender: FDA-Public Use
  Company Number: CA-MERCK-1203USA02397

PATIENT
  Age: 85 Year
  Sex: Female

DRUGS (5)
  1. METFORMIN [Concomitant]
     Route: 065
  2. HYZAAR [Suspect]
     Indication: HYPERTENSION
     Route: 048
     Dates: start: 20050101
  3. NORVASC [Concomitant]
     Route: 065
  4. AMARYL [Concomitant]
     Route: 065
  5. ACEBUTOLOL [Concomitant]
     Route: 065

REACTIONS (5)
  - FEELING ABNORMAL [None]
  - MEMORY IMPAIRMENT [None]
  - OVERDOSE [None]
  - PNEUMONIA [None]
  - DYSSTASIA [None]
